FAERS Safety Report 23508650 (Version 3)
Quarter: 2025Q4

REPORT INFORMATION
  Report Type: Report from Study
  Country: US (occurrence: US)
  Receive Date: 20240209
  Receipt Date: 20251223
  Transmission Date: 20260117
  Serious: Yes (Death, Other)
  Sender: JOHNSON AND JOHNSON
  Company Number: US-JNJFOC-20240203062

PATIENT
  Age: 71 Year
  Sex: Male

DRUGS (1)
  1. CILTACABTAGENE AUTOLEUCEL [Suspect]
     Active Substance: CILTACABTAGENE AUTOLEUCEL
     Indication: Plasma cell myeloma
     Dosage: TOTAL NUMBER OF CELLS ADMINISTERED: 37.9X 10^6 CELLS

REACTIONS (5)
  - Hepatic failure [Fatal]
  - Renal failure [Fatal]
  - Neoplasm malignant [Fatal]
  - Infection [Fatal]
  - Colon cancer [Unknown]
